FAERS Safety Report 9925401 (Version 1)
Quarter: 2014Q1

REPORT INFORMATION
  Report Type: Spontaneous
  Country: US (occurrence: None)
  Receive Date: 20140225
  Receipt Date: 20140225
  Transmission Date: 20141002
  Serious: Yes (Other)
  Sender: FDA-Public Use
  Company Number: None

PATIENT
  Age: 61 Year
  Sex: Female
  Weight: 49.9 kg

DRUGS (5)
  1. MYCOBUTIN [Suspect]
     Indication: MYCOBACTERIUM AVIUM COMPLEX INFECTION
     Route: 048
     Dates: start: 20131201, end: 20140125
  2. BIAXIN ER [Concomitant]
  3. ETHAMBUTOL [Concomitant]
  4. COLISTIN [Concomitant]
  5. SALINE [Concomitant]

REACTIONS (4)
  - Depressed mood [None]
  - Activities of daily living impaired [None]
  - Feeling abnormal [None]
  - Morbid thoughts [None]
